FAERS Safety Report 18950065 (Version 3)
Quarter: 2022Q3

REPORT INFORMATION
  Report Type: Spontaneous
  Country: US (occurrence: US)
  Receive Date: 20210228
  Receipt Date: 20220923
  Transmission Date: 20221027
  Serious: No
  Sender: FDA-Public Use
  Company Number: US-SA-SAC20210224000731

PATIENT
  Age: 50 Year
  Sex: Male

DRUGS (1)
  1. DUPIXENT [Suspect]
     Active Substance: DUPILUMAB
     Indication: Dermatitis atopic
     Dosage: 300 MG
     Route: 058
     Dates: start: 20201023

REACTIONS (6)
  - Ocular hyperaemia [Unknown]
  - Periorbital swelling [Unknown]
  - Pruritus [Unknown]
  - Eye pruritus [Recovering/Resolving]
  - Eye inflammation [Unknown]
  - Rash [Unknown]

NARRATIVE: CASE EVENT DATE: 20210219
